FAERS Safety Report 23769728 (Version 3)
Quarter: 2024Q3

REPORT INFORMATION
  Report Type: Spontaneous
  Country: JP (occurrence: JP)
  Receive Date: 20240422
  Receipt Date: 20240724
  Transmission Date: 20241017
  Serious: Yes (Other)
  Sender: BRISTOL MYERS SQUIBB
  Company Number: JP-BRISTOL-MYERS SQUIBB COMPANY-2024-048868

PATIENT
  Age: 90 Year
  Sex: Female

DRUGS (1)
  1. ORENCIA [Suspect]
     Active Substance: ABATACEPT
     Indication: Product used for unknown indication
     Route: 058

REACTIONS (3)
  - Device delivery system issue [Unknown]
  - Device safety feature issue [Unknown]
  - Device operational issue [Unknown]

NARRATIVE: CASE EVENT DATE: 20240319
